FAERS Safety Report 18247666 (Version 1)
Quarter: 2020Q3

REPORT INFORMATION
  Report Type: Spontaneous
  Country: US (occurrence: US)
  Receive Date: 20200909
  Receipt Date: 20200909
  Transmission Date: 20201103
  Serious: No
  Sender: FDA-Public Use
  Company Number: US-009507513-2008USA012865

PATIENT
  Sex: Male

DRUGS (15)
  1. HETLIOZ [Suspect]
     Active Substance: TASIMELTEON
     Indication: NON-24-HOUR SLEEP-WAKE DISORDER
     Dosage: 20 MILLIGRAM, QD 1 HR BEFORE BED
     Route: 048
  2. NAPROXEN. [Concomitant]
     Active Substance: NAPROXEN
     Dosage: 250 MILLIGRAM
  3. MEMANTINE. [Concomitant]
     Active Substance: MEMANTINE
     Dosage: 10 MILLIGRAM
  4. TRULICITY [Concomitant]
     Active Substance: DULAGLUTIDE
     Dosage: UNK
  5. CYPROHEPTADINE HYDROCHLORIDE. [Suspect]
     Active Substance: CYPROHEPTADINE HYDROCHLORIDE
     Indication: DECREASED APPETITE
     Dosage: 4 MILLIGRAM
     Dates: start: 2020
  6. LEXAPRO [Concomitant]
     Active Substance: ESCITALOPRAM OXALATE
     Dosage: 20 MILLIGRAM
  7. TYLENOL EXTRA STRENGTH [Concomitant]
     Active Substance: ACETAMINOPHEN
     Dosage: UNK
  8. METAMUCIL [Concomitant]
     Active Substance: PLANTAGO SEED
     Dosage: UNK
  9. DIVALPROEX SODIUM. [Concomitant]
     Active Substance: DIVALPROEX SODIUM
     Dosage: 500 MILLIGRAM
  10. SUCRALFATE. [Concomitant]
     Active Substance: SUCRALFATE
     Dosage: UNK
  11. SIMVASTATIN TABLETS, USP [Suspect]
     Active Substance: SIMVASTATIN
     Dosage: 20 MILLIGRAM
  12. MIRALAX [Concomitant]
     Active Substance: POLYETHYLENE GLYCOL 3350
     Dosage: UNK
  13. ZOLPIDEM [Concomitant]
     Active Substance: ZOLPIDEM TARTRATE
     Dosage: 10 MILLIGRAM
  14. ESOMEPRAZOLE. [Concomitant]
     Active Substance: ESOMEPRAZOLE MAGNESIUM
     Dosage: UNK
  15. FAMOTIDINE. [Concomitant]
     Active Substance: FAMOTIDINE
     Dosage: 20 MILLIGRAM

REACTIONS (3)
  - Decreased appetite [Unknown]
  - Tremor [Unknown]
  - Sedation [Unknown]

NARRATIVE: CASE EVENT DATE: 2020
